FAERS Safety Report 10246045 (Version 1)
Quarter: 2014Q2

REPORT INFORMATION
  Report Type: Spontaneous
  Country: US (occurrence: None)
  Receive Date: 20140617
  Receipt Date: 20140617
  Transmission Date: 20141212
  Serious: Yes (Other)
  Sender: FDA-Public Use
  Company Number: 2014VER00022

PATIENT
  Age: 21 Year
  Sex: Female

DRUGS (1)
  1. MYORISAN [Suspect]
     Dates: start: 20140227

REACTIONS (2)
  - Panic attack [None]
  - Anxiety [None]
